FAERS Safety Report 25836372 (Version 1)
Quarter: 2025Q3

REPORT INFORMATION
  Report Type: Spontaneous
  Country: US (occurrence: None)
  Receive Date: 20250922
  Receipt Date: 20250922
  Transmission Date: 20251020
  Serious: Yes (Hospitalization)
  Sender: FDA-CTU
  Company Number: None

PATIENT
  Age: 65 Year
  Sex: Female
  Weight: 73.9 kg

DRUGS (10)
  1. MOUNJARO [Suspect]
     Active Substance: TIRZEPATIDE
     Indication: Glucose tolerance impaired
     Route: 058
     Dates: start: 20250722, end: 20250920
  2. APIXABAN [Suspect]
     Active Substance: APIXABAN
     Indication: Deep vein thrombosis
     Dosage: FREQUENCY : TWICE A DAY;?
     Route: 048
     Dates: start: 20250918, end: 20250919
  3. ATORVASTATIN [Concomitant]
     Active Substance: ATORVASTATIN
  4. BUPROPION HYDROCHLORIDE [Concomitant]
     Active Substance: BUPROPION HYDROCHLORIDE
  5. FAMOTIDINE [Concomitant]
     Active Substance: FAMOTIDINE
  6. PRAMIPRAZOLE 1 MG [Concomitant]
  7. SERTRALINE [Concomitant]
     Active Substance: SERTRALINE HYDROCHLORIDE
  8. SERTRALINE HYDROCHLORIDE [Concomitant]
     Active Substance: SERTRALINE HYDROCHLORIDE
  9. ONDANNSTETRON 8MG TABLETS [Concomitant]
  10. RIVAROXABAN 15MG PO BID X 21 DAYS, THEN 20 MG 1 [Concomitant]

REACTIONS (11)
  - Abdominal pain upper [None]
  - Vomiting [None]
  - Chest discomfort [None]
  - Back pain [None]
  - Dyspnoea exertional [None]
  - Deep vein thrombosis [None]
  - Deep vein thrombosis [None]
  - Pulmonary embolism [None]
  - Computerised tomogram abnormal [None]
  - Vomiting [None]
  - Deep vein thrombosis [None]

NARRATIVE: CASE EVENT DATE: 20250919
